FAERS Safety Report 8685498 (Version 2)
Quarter: 2012Q4

REPORT INFORMATION
  Report Type: 
  Country: US (occurrence: US)
  Receive Date: 20120726
  Receipt Date: 20120910
  Transmission Date: 20130627
  Serious: Yes (Other)
  Sender: FDA-Public Use
  Company Number: US-BAYER-2012-073467

PATIENT
  Age: 87 Year
  Sex: Male
  Weight: 73 kg

DRUGS (5)
  1. BAYER ADVANCED ASPIRIN EXTRA STRENGTH [Suspect]
     Indication: PAIN
     Dosage: 2 DF, PRN
     Route: 048
  2. ASPIRIN [Concomitant]
  3. LOSARTAN [Concomitant]
  4. FELODIPINE [Concomitant]
  5. ISOSORBIDE [Concomitant]

REACTIONS (1)
  - Chemical burn of gastrointestinal tract [Recovered/Resolved]
